FAERS Safety Report 11220626 (Version 1)
Quarter: 2015Q2

REPORT INFORMATION
  Report Type: Spontaneous
  Country: US (occurrence: US)
  Receive Date: 20150626
  Receipt Date: 20150626
  Transmission Date: 20150821
  Serious: Yes (Other)
  Sender: FDA-Public Use
  Company Number: US-BEH-2015051919

PATIENT
  Age: 53 Year
  Sex: Male

DRUGS (3)
  1. IVIG [Suspect]
     Active Substance: HUMAN IMMUNOGLOBULIN G
     Indication: UPPER MOTOR NEURONE LESION
     Dosage: OVER 2 DAYS EVERY 3 WEEKS. APPROXIMATELY 1 YEAR.
     Route: 042
  2. IVIG [Suspect]
     Active Substance: HUMAN IMMUNOGLOBULIN G
     Indication: STIFF PERSON SYNDROME
     Dosage: OVER 2 DAYS EVERY 3 WEEKS. APPROXIMATELY 1 YEAR.
     Route: 042
  3. DEPO-TESTOSTERONE [Suspect]
     Active Substance: TESTOSTERONE CYPIONATE
     Indication: SECONDARY HYPOGONADISM
     Route: 030

REACTIONS (3)
  - Pain in extremity [Unknown]
  - Deep vein thrombosis [Unknown]
  - Pulmonary embolism [Unknown]
